FAERS Safety Report 5262072-4 (Version None)
Quarter: 2007Q1

REPORT INFORMATION
  Report Type: 
  Country: None (occurrence: None)
  Receive Date: 20061208
  Receipt Date: 20060927
  Transmission Date: 20070707
  Serious: Yes (Hospitalization, Other)
  Sender: FDA-Public Use
  Company Number: USA-2006-0025284

PATIENT
  Age: 36 Year
  Sex: Male

DRUGS (2)
  1. OXYCONTIN [Suspect]
     Indication: BACK PAIN
     Dosage: 80 MG, SEE TEXT
  2. PERCOCET [Concomitant]

REACTIONS (3)
  - DRUG ABUSER [None]
  - DRUG WITHDRAWAL SYNDROME [None]
  - ERYTHEMA [None]
